FAERS Safety Report 4965376-5 (Version None)
Quarter: 2006Q2

REPORT INFORMATION
  Report Type: 
  Country: None (occurrence: None)
  Receive Date: 20060406
  Receipt Date: 20050621
  Transmission Date: 20061013
  Serious: Yes (Hospitalization, Other)
  Sender: FDA-Public Use
  Company Number: US-MERCK-0506USA03214

PATIENT
  Age: 71 Year
  Sex: Male
  Weight: 77 kg

DRUGS (2)
  1. VIOXX [Suspect]
     Indication: RHEUMATOID ARTHRITIS
     Route: 048
     Dates: start: 19990201, end: 20040901
  2. METHOTREXATE [Concomitant]
     Indication: RHEUMATOID ARTHRITIS
     Route: 065

REACTIONS (8)
  - ACUTE MYOCARDIAL INFARCTION [None]
  - ANGINA UNSTABLE [None]
  - ATRIAL FIBRILLATION [None]
  - CATARACT [None]
  - CORONARY ARTERY DISEASE [None]
  - EMOTIONAL DISTRESS [None]
  - GASTROINTESTINAL DISORDER [None]
  - PROSTATIC DISORDER [None]
